FAERS Safety Report 25598769 (Version 1)
Quarter: 2025Q3

REPORT INFORMATION
  Report Type: Spontaneous
  Country: US (occurrence: US)
  Receive Date: 20250724
  Receipt Date: 20250724
  Transmission Date: 20251020
  Serious: Yes (Hospitalization)
  Sender: AMGEN
  Company Number: US-AMGEN-USASP2025140933

PATIENT
  Age: 49 Year
  Sex: Female

DRUGS (2)
  1. PREDNISONE [Suspect]
     Active Substance: PREDNISONE
     Indication: Primary ciliary dyskinesia
     Route: 065
  2. CEFDINIR [Concomitant]
     Active Substance: CEFDINIR
     Indication: Primary ciliary dyskinesia

REACTIONS (9)
  - Pneumonia klebsiella [Unknown]
  - Pneumonia pseudomonal [Unknown]
  - Lung hyperinflation [Unknown]
  - Pneumonia haemophilus [Unknown]
  - Pneumonia streptococcal [Unknown]
  - Pneumonia staphylococcal [Unknown]
  - Lung consolidation [Unknown]
  - Off label use [Unknown]
  - Drug ineffective for unapproved indication [Unknown]
